FAERS Safety Report 21352303 (Version 3)
Quarter: 2022Q4

REPORT INFORMATION
  Report Type: Spontaneous
  Country: US (occurrence: None)
  Receive Date: 20220920
  Receipt Date: 20221228
  Transmission Date: 20230113
  Serious: Yes (Hospitalization, Other)
  Sender: FDA-Public Use
  Company Number: US-Emmaus Medical, Inc.-EMM202209-000218

PATIENT
  Age: 61 Year
  Sex: Female

DRUGS (3)
  1. ENDARI [Suspect]
     Active Substance: GLUTAMINE
     Indication: Sickle cell disease
     Dosage: 15 G
     Route: 048
     Dates: start: 2018
  2. ENDARI [Suspect]
     Active Substance: GLUTAMINE
     Indication: Sickle cell anaemia with crisis
     Dosage: 15 GM
     Route: 048
     Dates: start: 202209
  3. ENDARI [Suspect]
     Active Substance: GLUTAMINE
     Dosage: 15 GM
     Route: 048
     Dates: start: 20220902

REACTIONS (5)
  - Hip surgery [Unknown]
  - Sickle cell anaemia with crisis [Not Recovered/Not Resolved]
  - Adverse event [Unknown]
  - Incision site haematoma [Not Recovered/Not Resolved]
  - Urinary tract infection [Unknown]

NARRATIVE: CASE EVENT DATE: 20190701
